FAERS Safety Report 4614412-4 (Version None)
Quarter: 2005Q1

REPORT INFORMATION
  Report Type: 
  Country: None (occurrence: None)
  Receive Date: 20050315
  Receipt Date: 20050228
  Transmission Date: 20050727
  Serious: Yes (Hospitalization, Other)
  Sender: FDA-Public Use
  Company Number: 2005BI000204

PATIENT
  Age: 54 Year
  Sex: Male
  Weight: 90.7194 kg

DRUGS (2)
  1. AVONEX [Suspect]
     Indication: MULTIPLE SCLEROSIS
     Dosage: 30 UG; QW; IM
     Route: 030
     Dates: start: 20011001, end: 20030101
  2. AVONEX [Suspect]
     Indication: MULTIPLE SCLEROSIS
     Dosage: 30 UG; QW; IM
     Route: 030
     Dates: start: 20030101

REACTIONS (8)
  - AMNESIA [None]
  - DIFFICULTY IN WALKING [None]
  - LUNG INFECTION [None]
  - PLATELET COUNT INCREASED [None]
  - PNEUMONIA [None]
  - PRURITUS [None]
  - RENAL IMPAIRMENT [None]
  - WHITE BLOOD CELL COUNT INCREASED [None]
